FAERS Safety Report 9097033 (Version 1)
Quarter: 2013Q1

REPORT INFORMATION
  Report Type: Spontaneous
  Country: TR (occurrence: None)
  Receive Date: 20130123
  Receipt Date: 20130123
  Transmission Date: 20140127
  Serious: No
  Sender: FDA-Public Use
  Company Number: B0860415A

PATIENT
  Age: 30 Year
  Sex: Female

DRUGS (3)
  1. FLUTICASONE PROPIONATE [Suspect]
     Indication: ASTHMA
     Route: 055
  2. PAXIL [Suspect]
     Indication: DEPRESSION
     Route: 048
  3. MIRTAZAPINE (MIRTAZAPINE) [Suspect]
     Indication: DEPRESSION

REACTIONS (4)
  - Cushing^s syndrome [None]
  - Thrombosis [None]
  - Oedema peripheral [None]
  - Drug interaction [None]
